FAERS Safety Report 24820761 (Version 2)
Quarter: 2025Q1

REPORT INFORMATION
  Report Type: Spontaneous
  Country: US (occurrence: US)
  Receive Date: 20250108
  Receipt Date: 20250122
  Transmission Date: 20250408
  Serious: No
  Sender: SANOFI AVENTIS
  Company Number: US-SANOFI-02357790

PATIENT
  Age: 64 Year
  Sex: Female

DRUGS (2)
  1. DUPIXENT [Suspect]
     Active Substance: DUPILUMAB
     Indication: Asthma
     Dosage: 300 MG, QOW
     Route: 065
     Dates: start: 2019
  2. DUPIXENT [Suspect]
     Active Substance: DUPILUMAB
     Indication: NSAID exacerbated respiratory disease

REACTIONS (6)
  - Cough [Unknown]
  - Ear congestion [Recovering/Resolving]
  - Hypoacusis [Recovering/Resolving]
  - Asthma [Unknown]
  - Off label use [Unknown]
  - Accidental exposure to product [Unknown]
